FAERS Safety Report 5542624-4 (Version None)
Quarter: 2007Q4

REPORT INFORMATION
  Report Type: 
  Country: None (occurrence: None)
  Receive Date: 20071210
  Receipt Date: 20071206
  Transmission Date: 20080405
  Serious: Yes (Death)
  Sender: FDA-Public Use
  Company Number: JP-GENENTECH-244081

PATIENT
  Age: 74 Year
  Sex: Female

DRUGS (7)
  1. ACTIVASE [Suspect]
     Indication: CEREBRAL ARTERY EMBOLISM
     Dosage: 36 MG/60 KG IV
     Route: 042
     Dates: start: 20070410, end: 20070410
  2. TICLOPIDINE HYDROCHLORIDE [Suspect]
     Indication: CEREBRAL INFARCTION
     Route: 048
  3. DEXTRAN 40-LACTATED RINGER'S SOLUTION [Concomitant]
     Indication: DRUG USE FOR UNKNOWN INDICATION
     Dates: start: 20070410, end: 20070413
  4. ZANTAC [Concomitant]
     Indication: DRUG USE FOR UNKNOWN INDICATION
     Dates: start: 20070410, end: 20070417
  5. RADICUT [Concomitant]
     Indication: DRUG USE FOR UNKNOWN INDICATION
     Dosage: INJECTION 30 MG
     Dates: start: 20070410, end: 20070417
  6. DIGOXIN [Concomitant]
     Indication: DRUG USE FOR UNKNOWN INDICATION
     Dates: start: 20070411, end: 20070412
  7. GLYCEOL [Concomitant]
     Indication: DRUG USE FOR UNKNOWN INDICATION
     Dosage: UNK, UNK
     Dates: start: 20070411, end: 20070417

REACTIONS (3)
  - ASTHMA [None]
  - HAEMORRHAGIC CEREBRAL INFARCTION [None]
  - TRACHEAL STENOSIS [None]
